FAERS Safety Report 5212568-6 (Version None)
Quarter: 2006Q4

REPORT INFORMATION
  Report Type: 
  Country: None (occurrence: None)
  Receive Date: 20061130
  Receipt Date: 20060614
  Transmission Date: 20070319
  Serious: Yes (Hospitalization, Disabling, Other)
  Sender: FDA-Public Use
  Company Number: WAES 0606USA02810

PATIENT
  Age: 77 Year
  Sex: Female
  Weight: 58.514 kg

DRUGS (7)
  1. FOSAMAX [Suspect]
     Indication: OSTEOPOROSIS
     Dosage: 70 MG/WKY/PO
     Route: 048
     Dates: start: 20000101, end: 20060101
  2. ARICEPT [Concomitant]
  3. CLOZARIL [Concomitant]
  4. ELDEPRYL [Concomitant]
  5. SINEMET [Concomitant]
  6. STALEVO 100 [Concomitant]
  7. AMANTADINE HCL [Concomitant]

REACTIONS (1)
  - OSTEOMYELITIS [None]
